FAERS Safety Report 17375301 (Version 7)
Quarter: 2025Q3

REPORT INFORMATION
  Report Type: Spontaneous
  Country: EU (occurrence: EU)
  Receive Date: 20200205
  Receipt Date: 20250707
  Transmission Date: 20251021
  Serious: Yes (Life-Threatening, Hospitalization, Other)
  Sender: MYLAN
  Company Number: EU-ADIENNEP-2019AD000600

PATIENT
  Age: 59 Year
  Sex: Male

DRUGS (18)
  1. METHOTREXATE [Suspect]
     Active Substance: METHOTREXATE
     Indication: Prophylaxis against graft versus host disease
     Dosage: 30 MG DAY +1 THEN 20 MG DAYS +3 AND +6
     Dates: start: 201803
  2. METHOTREXATE [Suspect]
     Active Substance: METHOTREXATE
     Dosage: 20 MILLIGRAM, QD 20 MG DAYS +3 AND +6)
     Dates: start: 201803
  3. METHOTREXATE [Suspect]
     Active Substance: METHOTREXATE
     Dosage: 30 MILLIGRAM, QD, (30 MG DAY +1 THEN 20 MG DAYS +3 AND +6)
     Dates: start: 201803
  4. FLUDARABINE [Suspect]
     Active Substance: FLUDARABINE PHOSPHATE
     Indication: Allogenic stem cell transplantation
     Dosage: 80 MILLIGRAM, QD (80 MG DAILY ON DAY-3)
     Dates: start: 201803
  5. FLUDARABINE [Suspect]
     Active Substance: FLUDARABINE PHOSPHATE
     Indication: Antifungal prophylaxis
     Dosage: 60 MILLIGRAM, QD, MITO-FLAG INDUCTION SCHEME; FLUDARABINE ON DAYS 1-5
  6. FLUDARABINE [Suspect]
     Active Substance: FLUDARABINE PHOSPHATE
  7. BUSULFAN [Suspect]
     Active Substance: BUSULFAN
     Indication: Allogenic stem cell transplantation
     Dosage: 240 MILLIGRAM, QD (240 MG DAILY ON DAYS -5 AND -4)
  8. LAPINE T-LYMPHOCYTE IMMUNE GLOBULIN [Suspect]
     Active Substance: LAPINE T-LYMPHOCYTE IMMUNE GLOBULIN
     Indication: Prophylaxis against graft versus host disease
     Dosage: 2.5 MG/KG DAYS -3, -2, -1
  9. THIOTEPA [Suspect]
     Active Substance: THIOTEPA
     Indication: Allogenic stem cell transplantation
     Dosage: 390 MILLIGRAM, QD (390 MG ON DAY -6)
     Dates: start: 201803
  10. CYCLOSPORINE [Suspect]
     Active Substance: CYCLOSPORINE
     Indication: Prophylaxis against graft versus host disease
     Dates: start: 201803, end: 201804
  11. LENALIDOMIDE [Suspect]
     Active Substance: LENALIDOMIDE
     Indication: Myelodysplastic syndrome
  12. CYTARABINE [Suspect]
     Active Substance: CYTARABINE
     Indication: Acute myeloid leukaemia
     Dosage: 2 GRAM, BID, MITO-FLAG INDUCTION SCHEME; CYTARABINE 2 G OVER 3 H EVERY 12 H ON DAY 1 - 5
  13. CYTARABINE [Suspect]
     Active Substance: CYTARABINE
  14. MITOXANTRONE [Suspect]
     Active Substance: MITOXANTRONE HYDROCHLORIDE
     Indication: Acute myeloid leukaemia
     Dosage: 12 MILLIGRAM, QD
  15. MITOXANTRONE [Suspect]
     Active Substance: MITOXANTRONE HYDROCHLORIDE
  16. MICAFUNGIN [Concomitant]
     Active Substance: MICAFUNGIN SODIUM
     Indication: Antifungal prophylaxis
  17. MICAFUNGIN [Concomitant]
     Active Substance: MICAFUNGIN SODIUM
  18. DEFERASIROX [Concomitant]
     Active Substance: DEFERASIROX
     Indication: Chelation therapy

REACTIONS (19)
  - Cavernous sinus thrombosis [Recovered/Resolved]
  - Brain abscess [Recovered/Resolved]
  - Carotid artery thrombosis [Recovered/Resolved]
  - Sensory loss [Recovered/Resolved]
  - Sinusitis fungal [Recovered/Resolved]
  - Vasogenic cerebral oedema [Recovered/Resolved]
  - Ophthalmic vein thrombosis [Recovered/Resolved]
  - Trigeminal neuralgia [Recovered/Resolved]
  - VIth nerve paralysis [Recovered/Resolved]
  - Weight decreased [Recovering/Resolving]
  - Rhinocerebral mucormycosis [Recovered/Resolved]
  - Graft versus host disease in eye [Unknown]
  - Graft versus host disease in liver [Unknown]
  - Graft versus host disease in skin [Unknown]
  - Graft versus host disease in gastrointestinal tract [Unknown]
  - Thrombophlebitis [Recovered/Resolved]
  - Bone marrow failure [Recovered/Resolved]
  - Cachexia [Recovered/Resolved]
  - Cranial nerve disorder [Recovered/Resolved]
